FAERS Safety Report 8055810-9 (Version None)
Quarter: 2011Q4

REPORT INFORMATION
  Report Type: 
  Country: None (occurrence: None)
  Receive Date: 20111219
  Receipt Date: 20110111
  Transmission Date: 20120403
  Serious: Yes (Other)
  Sender: FDA-Public Use
  Company Number: ENTC2011-0006

PATIENT

DRUGS (6)
  1. ENALAPRIL MALEATE [Concomitant]
  2. CARBIDOPA, LEVODOPA AND ENTACAPONE [Suspect]
     Indication: DEMENTIA ALZHEIMER'S TYPE
     Dosage: ORAL
     Route: 048
     Dates: start: 20060518
  3. CARBIDOPA, LEVODOPA AND ENTACAPONE [Suspect]
     Indication: PARKINSONISM
     Dosage: ORAL
     Route: 048
     Dates: start: 20060518
  4. ENABLEX [Concomitant]
  5. ISOSORBIDE (ISOSORBIDE) [Concomitant]
  6. CARBATROL [Concomitant]

REACTIONS (1)
  - GASTROINTESTINAL HAEMORRHAGE [None]
